FAERS Safety Report 8849982 (Version 2)
Quarter: 2015Q1

REPORT INFORMATION
  Report Type: Report from Study
  Country: US (occurrence: US)
  Receive Date: 20121019
  Receipt Date: 20150210
  Transmission Date: 20150721
  Serious: Yes (Hospitalization, Other)
  Sender: FDA-Public Use
  Company Number: US-ROCHE-1139721

PATIENT
  Age: 12 Year
  Sex: Female
  Weight: 44.2 kg

DRUGS (20)
  1. PROTROPIN [Suspect]
     Active Substance: SOMATREM
     Route: 058
  2. NUTROPIN AQ [Suspect]
     Active Substance: SOMATROPIN
     Route: 058
  3. PROTROPIN [Suspect]
     Active Substance: SOMATREM
     Route: 058
  4. NUTROPIN AQ [Suspect]
     Active Substance: SOMATROPIN
     Route: 058
  5. ORTHO-NOVUM [Concomitant]
     Active Substance: ETHINYL ESTRADIOL\NORETHINDRONE
     Dosage: 1/50 ON DAILY BASIS
     Route: 065
  6. PROTROPIN [Suspect]
     Active Substance: SOMATREM
     Route: 058
  7. PROTROPIN [Suspect]
     Active Substance: SOMATREM
     Route: 058
  8. NUTROPIN AQ [Suspect]
     Active Substance: SOMATROPIN
     Route: 058
  9. THYROXINE [Suspect]
     Active Substance: LEVOTHYROXINE
     Indication: HYPOTHYROIDISM
     Route: 065
  10. NUTROPIN AQ [Suspect]
     Active Substance: SOMATROPIN
     Indication: HYPOPITUITARISM
     Route: 058
     Dates: start: 19870921, end: 199306
  11. NUTROPIN AQ [Suspect]
     Active Substance: SOMATROPIN
     Route: 058
  12. SYNTHROID [Concomitant]
     Active Substance: LEVOTHYROXINE SODIUM
     Route: 065
  13. PROTROPIN [Suspect]
     Active Substance: SOMATREM
     Indication: HYPOTHALAMO-PITUITARY DISORDER
     Route: 058
     Dates: start: 19870921
  14. NUTROPIN AQ [Suspect]
     Active Substance: SOMATROPIN
     Indication: GROWTH HORMONE DEFICIENCY
     Route: 058
  15. THYROXINE [Suspect]
     Active Substance: LEVOTHYROXINE
     Route: 065
  16. PROTROPIN [Suspect]
     Active Substance: SOMATREM
     Route: 058
  17. NUTROPIN AQ [Suspect]
     Active Substance: SOMATROPIN
     Route: 058
  18. THYROXINE [Suspect]
     Active Substance: LEVOTHYROXINE
     Route: 065
  19. ORTHO CYCLEN [Concomitant]
     Active Substance: ETHINYL ESTRADIOL\NORGESTIMATE
     Dosage: 0.25-35 MG
     Route: 048
  20. NUTROPIN AQ [Suspect]
     Active Substance: SOMATROPIN
     Route: 058

REACTIONS (21)
  - Facial bones fracture [Recovered/Resolved]
  - Hirsutism [Unknown]
  - Gait disturbance [Unknown]
  - Eosinophilia [Unknown]
  - Weight increased [Unknown]
  - Foot deformity [Unknown]
  - Asthenia [Unknown]
  - Alopecia [Unknown]
  - Constipation [Unknown]
  - Obesity [Unknown]
  - Hypertrichosis [Unknown]
  - Blood cholesterol increased [Unknown]
  - Dysmenorrhoea [Unknown]
  - Jaw fracture [Unknown]
  - Mood altered [Unknown]
  - Onychoclasis [Unknown]
  - Headache [Unknown]
  - Amenorrhoea [Unknown]
  - Hypothyroidism [Unknown]
  - Fall [Unknown]
  - Back pain [Unknown]

NARRATIVE: CASE EVENT DATE: 19900816
